FAERS Safety Report 20183421 (Version 1)
Quarter: 2021Q4

REPORT INFORMATION
  Report Type: Spontaneous
  Country: US (occurrence: US)
  Receive Date: 20211214
  Receipt Date: 20211214
  Transmission Date: 20220303
  Serious: No
  Sender: FDA-Public Use
  Company Number: US-ABBVIE-21K-163-3859126-00

PATIENT
  Age: 67 Year

DRUGS (2)
  1. IMBRUVICA [Suspect]
     Active Substance: IBRUTINIB
     Indication: Chronic lymphocytic leukaemia
     Route: 048
     Dates: start: 202003
  2. IMBRUVICA [Suspect]
     Active Substance: IBRUTINIB
     Route: 048

REACTIONS (14)
  - Quality of life decreased [Unknown]
  - Eye swelling [Not Recovered/Not Resolved]
  - Eye irritation [Not Recovered/Not Resolved]
  - Eye pruritus [Not Recovered/Not Resolved]
  - Ocular hyperaemia [Not Recovered/Not Resolved]
  - Lacrimation increased [Not Recovered/Not Resolved]
  - Urinary tract infection [Unknown]
  - Vision blurred [Not Recovered/Not Resolved]
  - Kidney infection [Unknown]
  - Contusion [Unknown]
  - Dyspnoea [Unknown]
  - Myalgia [Unknown]
  - Stomatitis [Unknown]
  - Rash macular [Unknown]

NARRATIVE: CASE EVENT DATE: 20201101
